FAERS Safety Report 11105701 (Version 3)
Quarter: 2015Q2

REPORT INFORMATION
  Report Type: Spontaneous
  Country: US (occurrence: None)
  Receive Date: 20150508
  Receipt Date: 20150515
  Transmission Date: 20150821
  Serious: Yes (Death, Other)
  Sender: FDA-Public Use
  Company Number: ADR-2015-00847

PATIENT
  Age: 40 Year
  Sex: Female

DRUGS (4)
  1. BUPIVACAINE INTRATHECAL 30 MG/ML [Suspect]
     Active Substance: BUPIVACAINE
     Dosage: 30.028 MG/DAY
  2. COMPOUNDED INTRATHECAL BACLOFEN 150 MCG/ML [Suspect]
     Active Substance: BACLOFEN
     Indication: PAIN
     Dosage: 150.14 MCG/DAY?
  3. DILAUDID [Suspect]
     Active Substance: HYDROMORPHONE HYDROCHLORIDE
     Indication: PAIN
     Dosage: 2.5023 MG/DAY?
  4. CLONIDINE INTRATHECAL 250 MCG/ML [Suspect]
     Active Substance: CLONIDINE
     Dosage: 250.23 MCG/DAY

REACTIONS (2)
  - Sedation [None]
  - Cervical dysplasia [None]

NARRATIVE: CASE EVENT DATE: 20140917
